FAERS Safety Report 12900282 (Version 5)
Quarter: 2016Q4

REPORT INFORMATION
  Report Type: Spontaneous
  Country: CN (occurrence: CN)
  Receive Date: 20161101
  Receipt Date: 20161111
  Transmission Date: 20170207
  Serious: Yes (Death, Hospitalization)
  Sender: FDA-Public Use
  Company Number: CN-B.I. PHARMACEUTICALS,INC./RIDGEFIELD-2016-BI-070683

PATIENT
  Age: 60 Year
  Sex: Female

DRUGS (25)
  1. FUROSEMIDE. [Concomitant]
     Active Substance: FUROSEMIDE
     Indication: CARDIOMEGALY
     Dosage: UNIT DOSE:20
     Route: 048
     Dates: start: 201406, end: 201609
  2. PERINDOPRIL TABLETS [Concomitant]
     Active Substance: PERINDOPRIL
     Indication: CARDIOMEGALY
  3. TRIMETAZIDINE [Concomitant]
     Active Substance: TRIMETAZIDINE
     Indication: CARDIOMEGALY
  4. METOPROLOL SUCCINATE. [Concomitant]
     Active Substance: METOPROLOL SUCCINATE
     Indication: CARDIAC DISORDER
     Dosage: DAILY DOSE:47.75
     Route: 048
     Dates: start: 201508, end: 20161013
  5. ATORVASTATIN [Concomitant]
     Active Substance: ATORVASTATIN
     Indication: CONGESTIVE CARDIOMYOPATHY
     Route: 065
     Dates: start: 201607, end: 20161013
  6. PERINDOPRIL TABLETS [Concomitant]
     Active Substance: PERINDOPRIL
     Indication: CONGESTIVE CARDIOMYOPATHY
     Route: 065
     Dates: start: 201006, end: 20161013
  7. PRADAXA [Suspect]
     Active Substance: DABIGATRAN ETEXILATE MESYLATE
     Indication: EMBOLISM
  8. RABEPRAZOLE [Concomitant]
     Active Substance: RABEPRAZOLE
     Indication: CHRONIC GASTRITIS
     Dosage: UNIT DOSE AND DAILY DOSE:10
     Route: 048
     Dates: start: 201607, end: 20161013
  9. TRIMETAZIDINE [Concomitant]
     Active Substance: TRIMETAZIDINE
     Indication: CONGESTIVE CARDIOMYOPATHY
     Route: 065
     Dates: start: 201308, end: 20161013
  10. METOPROLOL SUCCINATE. [Concomitant]
     Active Substance: METOPROLOL SUCCINATE
     Indication: CONGESTIVE CARDIOMYOPATHY
     Dosage: UNIT DOSE AND DAILY DOSE: 23.75
     Route: 048
     Dates: start: 201308, end: 201308
  11. ATORVASTATIN [Concomitant]
     Active Substance: ATORVASTATIN
     Indication: CARDIAC DISORDER
  12. METOPROLOL SUCCINATE. [Concomitant]
     Active Substance: METOPROLOL SUCCINATE
     Indication: CARDIOMEGALY
     Dosage: DAILY DOSE:23.75
     Route: 048
     Dates: start: 201308, end: 201508
  13. PRADAXA [Suspect]
     Active Substance: DABIGATRAN ETEXILATE MESYLATE
     Indication: ATRIAL FIBRILLATION
     Route: 048
     Dates: start: 20160723, end: 20160923
  14. SPIRONOLACTONE. [Suspect]
     Active Substance: SPIRONOLACTONE
     Indication: CONGESTIVE CARDIOMYOPATHY
     Route: 048
     Dates: start: 201406, end: 20161013
  15. PRADAXA [Suspect]
     Active Substance: DABIGATRAN ETEXILATE MESYLATE
     Indication: CEREBROVASCULAR ACCIDENT PROPHYLAXIS
  16. FUROSEMIDE. [Concomitant]
     Active Substance: FUROSEMIDE
     Indication: CONGESTIVE CARDIOMYOPATHY
     Dosage: UNIT DOSE:20
     Route: 048
     Dates: start: 201006, end: 201606
  17. FUROSEMIDE. [Concomitant]
     Active Substance: FUROSEMIDE
     Indication: CARDIAC DISORDER
     Dosage: 40-60MG/WEEK
     Route: 048
     Dates: start: 201607, end: 20161013
  18. ATORVASTATIN [Concomitant]
     Active Substance: ATORVASTATIN
     Indication: CARDIOMEGALY
  19. SPIRONOLACTONE. [Suspect]
     Active Substance: SPIRONOLACTONE
     Indication: CARDIAC DISORDER
  20. PRADAXA [Suspect]
     Active Substance: DABIGATRAN ETEXILATE MESYLATE
     Indication: HIGH FREQUENCY ABLATION
  21. PRADAXA [Suspect]
     Active Substance: DABIGATRAN ETEXILATE MESYLATE
     Indication: ATRIAL FIBRILLATION
  22. SPIRONOLACTONE. [Suspect]
     Active Substance: SPIRONOLACTONE
     Indication: CARDIOMEGALY
     Route: 065
     Dates: start: 201610
  23. PERINDOPRIL TABLETS [Concomitant]
     Active Substance: PERINDOPRIL
     Indication: CARDIAC DISORDER
  24. TRIMETAZIDINE [Concomitant]
     Active Substance: TRIMETAZIDINE
     Indication: CARDIAC DISORDER
  25. ITOPRIDE HYDROCHLORIDE [Concomitant]
     Active Substance: ITOPRIDE HYDROCHLORIDE
     Indication: CHRONIC GASTRITIS
     Dosage: DOSE: 50 AND DAILY DOSE:150
     Route: 048
     Dates: start: 201607, end: 20161013

REACTIONS (6)
  - Protein total abnormal [Unknown]
  - Blood creatinine abnormal [Unknown]
  - Dermatitis exfoliative [Unknown]
  - Thrombin time abnormal [Unknown]
  - Acute kidney injury [Fatal]
  - Activated partial thromboplastin time abnormal [Unknown]

NARRATIVE: CASE EVENT DATE: 20160720
